FAERS Safety Report 4778953-1 (Version None)
Quarter: 2005Q3

REPORT INFORMATION
  Report Type: 
  Country: None (occurrence: None)
  Receive Date: 20050922
  Receipt Date: 20050727
  Transmission Date: 20060218
  Serious: Yes (Hospitalization)
  Sender: FDA-Public Use
  Company Number: 2005-132512-NL

PATIENT
  Age: 70 Year
  Sex: Female

DRUGS (1)
  1. MIRTAZAPINE [Suspect]
     Route: 048

REACTIONS (3)
  - DEPRESSION [None]
  - OFF LABEL USE [None]
  - OVERDOSE [None]
